FAERS Safety Report 10427006 (Version 1)
Quarter: 2014Q3

REPORT INFORMATION
  Report Type: Spontaneous
  Country: US (occurrence: US)
  Receive Date: 20140903
  Receipt Date: 20140903
  Transmission Date: 20150326
  Serious: No
  Sender: FDA-Public Use
  Company Number: US-BANPHARM-20131850

PATIENT
  Age: 40 Year
  Sex: Female
  Weight: 73.48 kg

DRUGS (4)
  1. ALLERGY SHOTS [Concomitant]
     Active Substance: UNSPECIFIED INGREDIENT
     Indication: HYPERSENSITIVITY
  2. CORICIDIN NON DROWSY [Concomitant]
     Indication: HYPERSENSITIVITY
  3. BENADRYL [Concomitant]
     Active Substance: DIPHENHYDRAMINE HYDROCHLORIDE
     Indication: HYPERSENSITIVITY
     Dosage: 1-2 DF,
  4. ZYRTEC [Suspect]
     Active Substance: CETIRIZINE HYDROCHLORIDE
     Indication: HYPERSENSITIVITY
     Dosage: 1 DF, QD,
     Route: 048

REACTIONS (2)
  - Product substitution issue [Unknown]
  - Drug effect incomplete [Unknown]
